FAERS Safety Report 5873329-8 (Version None)
Quarter: 2008Q3

REPORT INFORMATION
  Report Type: 
  Country: None (occurrence: None)
  Receive Date: 20080903
  Receipt Date: 20080825
  Transmission Date: 20090109
  Serious: Yes (Life-Threatening, Other)
  Sender: FDA-Public Use
  Company Number: 220003M08FRA

PATIENT
  Age: 9 Year
  Sex: Male
  Weight: 23 kg

DRUGS (3)
  1. SAIZEN [Suspect]
     Indication: BLOOD GROWTH HORMONE DECREASED
     Dosage: 0.73 MG, 6 IN 1 WEEKS
     Dates: start: 20070101, end: 20080301
  2. NEO-MERCAZOLE TAB [Concomitant]
  3. HYOSCINE [Concomitant]

REACTIONS (14)
  - ANXIETY [None]
  - APHASIA [None]
  - AUTONOMIC NERVOUS SYSTEM IMBALANCE [None]
  - BRAIN STEM GLIOMA [None]
  - CONSTIPATION [None]
  - FAECALOMA [None]
  - HEADACHE [None]
  - INJECTION SITE PAIN [None]
  - LOCKED-IN SYNDROME [None]
  - QUADRIPLEGIA [None]
  - RESPIRATORY DISORDER [None]
  - SLEEP DISORDER [None]
  - URINARY TRACT DISORDER [None]
  - VITAMIN D DEFICIENCY [None]
